FAERS Safety Report 5454197-5 (Version None)
Quarter: 2007Q3

REPORT INFORMATION
  Report Type: 
  Country: None (occurrence: None)
  Receive Date: 20070917
  Receipt Date: 20070905
  Transmission Date: 20080115
  Serious: Yes (Other)
  Sender: FDA-Public Use
  Company Number: NZ-SHR-NZ-2007-033842

PATIENT
  Age: 60 Year
  Sex: Male
  Weight: 79.5 kg

DRUGS (8)
  1. FLUDARABINE PHOSPHATE [Suspect]
     Indication: CHRONIC LYMPHOCYTIC LEUKAEMIA
     Dosage: 50 MG, CYCLES 1-4
     Route: 042
     Dates: start: 20061220, end: 20070506
  2. FLUDARABINE PHOSPHATE [Suspect]
     Dosage: 25 MG, CYCLES 5 AND 6
     Route: 042
     Dates: start: 20070507, end: 20070607
  3. CYCLOPHOSPHAMIDE [Suspect]
     Indication: CHRONIC LYMPHOCYTIC LEUKAEMIA
     Dosage: 500 MG, CYCLES 1-4
     Route: 042
     Dates: start: 20061220, end: 20070506
  4. CYCLOPHOSPHAMIDE [Suspect]
     Dosage: 250 MG, CYCLE 5 AND 6
     Route: 042
     Dates: start: 20070507, end: 20070607
  5. INHIBACE [Concomitant]
     Dosage: .5 MG/D, UNK
  6. OMEPRAZOLE [Concomitant]
     Dosage: 10 MG/D, UNK
  7. CO-TRIMOXAZOLE [Concomitant]
     Dosage: 960 MG, 3X/WEEK, MON, WED, FRI
     Dates: start: 20070618
  8. CARTIA                                  /AUS/ [Concomitant]
     Dosage: 100 MG, 1X/DAY

REACTIONS (2)
  - ANAEMIA [None]
  - APLASIA PURE RED CELL [None]
